FAERS Safety Report 17158384 (Version 1)
Quarter: 2019Q4

REPORT INFORMATION
  Report Type: Spontaneous
  Country: US (occurrence: US)
  Receive Date: 20191216
  Receipt Date: 20191216
  Transmission Date: 20200122
  Serious: No
  Sender: FDA-Public Use
  Company Number: US-ENDO PHARMACEUTICALS INC-2019-105577

PATIENT
  Sex: Male
  Weight: 83.9 kg

DRUGS (1)
  1. XIAFLEX [Suspect]
     Active Substance: COLLAGENASE CLOSTRIDIUM HISTOLYTICUM
     Indication: PEYRONIE^S DISEASE
     Dosage: UNK UNKNOWN, FIRST CYCLE: INJECTION 1 AND 2
     Route: 026

REACTIONS (2)
  - Erectile dysfunction [Unknown]
  - Ejaculation disorder [Unknown]
